FAERS Safety Report 10901337 (Version 1)
Quarter: 2015Q1

REPORT INFORMATION
  Report Type: Spontaneous
  Country: GB (occurrence: GB)
  Receive Date: 20150310
  Receipt Date: 20150310
  Transmission Date: 20150721
  Serious: Yes (Death)
  Sender: FDA-Public Use
  Company Number: GB-BAXTER-2015BAX004302

PATIENT
  Age: 75 Year
  Sex: Female
  Weight: 49.6 kg

DRUGS (3)
  1. EXTRANEAL (ICODEXTRIN 7.5%) SOLUTION FOR PERITONEAL DIALYSIS [Suspect]
     Active Substance: ICODEXTRIN
     Indication: PERITONEAL DIALYSIS
     Route: 033
     Dates: start: 201404
  2. PHYSIONEAL 40 GLUCOSE 2.27% W/V / 22.7 MG/ML CLEAR-FLEX, SOLUTION FOR [Suspect]
     Active Substance: CALCIUM CHLORIDE\DEXTROSE\MAGNESIUM CHLORIDE\SODIUM CHLORIDE SOLUTION
     Indication: PERITONEAL DIALYSIS
     Route: 033
     Dates: start: 201404
  3. PHYSIONEAL 40 GLUCOSE 1.36% W/V / 13.6 MG/ML CLEAR-FLEX, SOLUTION FOR [Suspect]
     Active Substance: CALCIUM CHLORIDE\DEXTROSE\MAGNESIUM CHLORIDE\SODIUM CHLORIDE SOLUTION
     Indication: PERITONEAL DIALYSIS
     Route: 033
     Dates: start: 201404

REACTIONS (1)
  - Death [Fatal]

NARRATIVE: CASE EVENT DATE: 20150122
